FAERS Safety Report 23065514 (Version 1)
Quarter: 2023Q4

REPORT INFORMATION
  Report Type: Spontaneous
  Country: US (occurrence: US)
  Receive Date: 20231013
  Receipt Date: 20231013
  Transmission Date: 20240110
  Serious: Yes (Hospitalization)
  Sender: FDA-Public Use
  Company Number: US-PRINSTON PHARMACEUTICAL INC.-2023PRN00521

PATIENT
  Age: 44 Year
  Sex: Female

DRUGS (2)
  1. PHENTERMINE HYDROCHLORIDE [Suspect]
     Active Substance: PHENTERMINE HYDROCHLORIDE
     Indication: Weight decreased
  2. CAFFEINE [Suspect]
     Active Substance: CAFFEINE
     Dosage: EXCESSIVE AMOUNTS
     Route: 048

REACTIONS (2)
  - Cardiomyopathy [Recovered/Resolved]
  - Sinus tachycardia [Recovered/Resolved]
